FAERS Safety Report 5563138-1 (Version None)
Quarter: 2007Q4

REPORT INFORMATION
  Report Type: 
  Country: None (occurrence: None)
  Receive Date: 20071217
  Receipt Date: 20071209
  Transmission Date: 20080405
  Serious: Yes (Life-Threatening)
  Sender: FDA-Public Use
  Company Number: B0495314A

PATIENT
  Age: 55 Year
  Sex: Male

DRUGS (4)
  1. FORTUM [Suspect]
     Dosage: 1G SINGLE DOSE
     Route: 030
     Dates: start: 20071103, end: 20071103
  2. LIPITOR [Concomitant]
  3. AVAPRO [Concomitant]
  4. ASPIRIN [Concomitant]

REACTIONS (10)
  - ANAPHYLACTIC REACTION [None]
  - DYSPHAGIA [None]
  - DYSPHONIA [None]
  - ERYTHEMA [None]
  - FACE OEDEMA [None]
  - HYPERSENSITIVITY [None]
  - LARYNGEAL OEDEMA [None]
  - PRURITUS [None]
  - RASH [None]
  - URTICARIA [None]
